FAERS Safety Report 8956366 (Version 3)
Quarter: 2013Q1

REPORT INFORMATION
  Report Type: Report from Study
  Country: US (occurrence: US)
  Receive Date: 20121210
  Receipt Date: 20130207
  Transmission Date: 20140127
  Serious: No
  Sender: FDA-Public Use
  Company Number: US-VERTEX PHARMACEUTICALS INC.-2012-025798

PATIENT
  Age: 51 Year
  Sex: Female
  Weight: 78 kg

DRUGS (9)
  1. VX-950 (TELAPREVIR) [Suspect]
     Indication: HEPATITIS C
     Dosage: 750 MG, TID
     Route: 048
     Dates: start: 20121203
  2. RIBASPHERE [Suspect]
     Indication: HEPATITIS C
     Dosage: 600 MG IN AM, 400 MG IN PM
     Route: 048
     Dates: start: 20121203
  3. RIBASPHERE [Suspect]
     Dosage: 1 DF, BID
     Route: 048
  4. RIBASPHERE [Suspect]
     Dosage: 1 DF, QD
     Route: 048
  5. PEGASYS [Suspect]
     Indication: HEPATITIS C
     Dosage: 180 ?G, WEEKLY
     Route: 058
     Dates: start: 20121203
  6. PEGASYS [Suspect]
     Dosage: 90 ?G, QW
     Route: 058
     Dates: start: 20130205
  7. OMEPRAZOLE [Concomitant]
     Dosage: 20 MG, BID
     Route: 048
  8. GABAPENTIN [Concomitant]
     Dosage: 300 MG, TID
     Route: 048
  9. CYANOCOBALAMIN [Concomitant]
     Dosage: 100 ?G, MONTHLY
     Route: 058

REACTIONS (6)
  - Headache [Unknown]
  - Dry skin [Recovered/Resolved]
  - Rash generalised [Unknown]
  - Rash erythematous [Recovered/Resolved]
  - Red blood cell count decreased [Not Recovered/Not Resolved]
  - Nausea [Not Recovered/Not Resolved]
